FAERS Safety Report 24362653 (Version 1)
Quarter: 2024Q3

REPORT INFORMATION
  Report Type: Spontaneous
  Country: CN (occurrence: CN)
  Receive Date: 20240925
  Receipt Date: 20240925
  Transmission Date: 20241016
  Serious: Yes (Other)
  Sender: PAREXEL
  Company Number: CN-SHANGHAI JUNSHI BIOSCIENCES CO., LTD.-CN2024011440

PATIENT

DRUGS (4)
  1. TORIPALIMAB [Suspect]
     Active Substance: TORIPALIMAB
     Indication: Bladder cancer
     Dosage: UNK
  2. TORIPALIMAB [Suspect]
     Active Substance: TORIPALIMAB
     Dosage: 240 MG (D1), PUMP INJECTION
     Dates: start: 20240913, end: 20240913
  3. GEMCITABINE HYDROCHLORIDE [Suspect]
     Active Substance: GEMCITABINE HYDROCHLORIDE
     Indication: Bladder cancer
     Dosage: UNK
     Route: 041
  4. GEMCITABINE HYDROCHLORIDE [Suspect]
     Active Substance: GEMCITABINE HYDROCHLORIDE
     Dosage: 1.5 G (D1, D8)
     Route: 041
     Dates: start: 20240913, end: 20240913

REACTIONS (1)
  - Myelosuppression [Recovered/Resolved]

NARRATIVE: CASE EVENT DATE: 20240919
